FAERS Safety Report 23224343 (Version 2)
Quarter: 2023Q4

REPORT INFORMATION
  Report Type: Spontaneous
  Country: CZ (occurrence: CZ)
  Receive Date: 20231124
  Receipt Date: 20231129
  Transmission Date: 20240110
  Serious: Yes (Death, Life-Threatening, Hospitalization, Disabling, Other)
  Sender: FDA-Public Use
  Company Number: None

PATIENT
  Age: 64 Year
  Sex: Female
  Weight: 86 kg

DRUGS (13)
  1. THYMOGLOBULINE [Suspect]
     Active Substance: LAPINE T-LYMPHOCYTE IMMUNE GLOBULIN
     Indication: Allogenic bone marrow transplantation therapy
     Dosage: 200MG 3 MG/KG, AD 500 ML F1/1 FOR 12 HODIN
     Route: 042
     Dates: start: 20230326, end: 20230327
  2. MYCOPHENOLATE MOFETIL [Concomitant]
     Active Substance: MYCOPHENOLATE MOFETIL
     Indication: Prophylaxis against graft versus host disease
     Dosage: 500 MG, QD
     Route: 048
  3. PROGRAF [Concomitant]
     Active Substance: TACROLIMUS
     Dosage: 1 MG, BID
     Route: 048
  4. CITALOPRAM [Concomitant]
     Active Substance: CITALOPRAM HYDROBROMIDE
     Dosage: 10 MG, QD
     Route: 048
  5. BETAHISTINE [Concomitant]
     Active Substance: BETAHISTINE
     Dosage: 24 MG, BID
     Route: 048
  6. FLUDARABINE PHOSPHATE [Concomitant]
     Active Substance: FLUDARABINE PHOSPHATE
     Indication: Allogenic bone marrow transplantation therapy
     Dosage: UNK
  7. VALACYCLOVIR HYDROCHLORIDE [Concomitant]
     Active Substance: VALACYCLOVIR HYDROCHLORIDE
     Dosage: 500 MG, BID
     Route: 048
  8. TREOSULFAN [Concomitant]
     Active Substance: TREOSULFAN
     Indication: Allogenic bone marrow transplantation therapy
     Dosage: UNK
  9. EXJADE [Concomitant]
     Active Substance: DEFERASIROX
     Dosage: 720 MG, QD (0-0-2)
     Route: 048
  10. ALPRAZOLAM [Concomitant]
     Active Substance: ALPRAZOLAM
     Dosage: 0.5 MG, QD
     Route: 048
  11. COTRIMOXAZOLE [Concomitant]
     Active Substance: SULFAMETHOXAZOLE\TRIMETHOPRIM
     Dosage: 800MG/160MG1-0-1 THURSDAY, FRIDAY
     Route: 048
  12. CONTROLOC [Concomitant]
     Active Substance: PANTOPRAZOLE SODIUM
     Dosage: 40 MG, BID
     Route: 048
  13. TACROLIMUS [Concomitant]
     Active Substance: TACROLIMUS
     Indication: Prophylaxis against graft versus host disease

REACTIONS (6)
  - Acute graft versus host disease in liver [Fatal]
  - Acute graft versus host disease in intestine [Fatal]
  - Drug ineffective [Unknown]
  - Sepsis [Unknown]
  - Device related sepsis [Unknown]
  - Sepsis [Unknown]

NARRATIVE: CASE EVENT DATE: 20230101
